FAERS Safety Report 9491929 (Version 1)
Quarter: 2013Q3

REPORT INFORMATION
  Report Type: Spontaneous
  Country: CN (occurrence: CN)
  Receive Date: 20130830
  Receipt Date: 20130830
  Transmission Date: 20140515
  Serious: Yes (Other)
  Sender: FDA-Public Use
  Company Number: CN-PFIZER INC-2013247115

PATIENT
  Age: 66 Year
  Sex: Female
  Weight: 51 kg

DRUGS (3)
  1. AZITHROMYCIN [Suspect]
     Indication: LUNG INFECTION
     Dosage: UNK
     Dates: start: 20120417, end: 20120422
  2. CLINDAMYCIN [Concomitant]
     Dosage: UNK
     Dates: start: 20120417
  3. LEVOFLOXACIN [Concomitant]
     Dosage: UNK
     Dates: start: 20120422

REACTIONS (4)
  - Pseudomembranous colitis [Recovering/Resolving]
  - Diarrhoea [Recovering/Resolving]
  - Frequent bowel movements [Recovering/Resolving]
  - Faeces discoloured [Recovering/Resolving]
